FAERS Safety Report 18676258 (Version 1)
Quarter: 2020Q4

REPORT INFORMATION
  Report Type: Spontaneous
  Country: FR (occurrence: FR)
  Receive Date: 20201229
  Receipt Date: 20201229
  Transmission Date: 20210114
  Serious: Yes (Other)
  Sender: FDA-Public Use
  Company Number: FR-BAYER-2020-088774

PATIENT
  Age: 34 Year
  Sex: Female
  Weight: 56 kg

DRUGS (1)
  1. KYLEENA [Suspect]
     Active Substance: LEVONORGESTREL
     Dosage: 17.5 ?G PER DAY CONTINUOUSLY
     Route: 015
     Dates: start: 20191129, end: 20201105

REACTIONS (4)
  - Device expulsion [None]
  - Pregnancy with contraceptive device [Recovered/Resolved]
  - Placenta accreta [None]
  - Drug ineffective [None]

NARRATIVE: CASE EVENT DATE: 2020
